FAERS Safety Report 25523621 (Version 1)
Quarter: 2025Q3

REPORT INFORMATION
  Report Type: Report from Study
  Country: US (occurrence: US)
  Receive Date: 20250707
  Receipt Date: 20250707
  Transmission Date: 20251021
  Serious: No
  Sender: SUNOVION
  Company Number: US-SMPA-2025SPA007513AA

PATIENT

DRUGS (7)
  1. ORGOVYX [Suspect]
     Active Substance: RELUGOLIX
     Indication: Prostate cancer
     Dosage: 360 MG, SINGLE
     Route: 048
     Dates: start: 20250603, end: 20250603
  2. ORGOVYX [Suspect]
     Active Substance: RELUGOLIX
     Dosage: 120 MG, QD
     Route: 048
     Dates: start: 20250604
  3. CHOLECALCIFEROL\UBIDECARENONE [Concomitant]
     Active Substance: CHOLECALCIFEROL\UBIDECARENONE
  4. VITAMINS [Concomitant]
     Active Substance: VITAMINS
     Route: 065
  5. Turmeric complex [Concomitant]
     Route: 065
  6. Tart cherry [Concomitant]
     Route: 065
  7. FISH OIL\OMEGA-3 FATTY ACIDS [Concomitant]
     Active Substance: FISH OIL\OMEGA-3 FATTY ACIDS
     Route: 065

REACTIONS (2)
  - Hot flush [Unknown]
  - Fatigue [Unknown]

NARRATIVE: CASE EVENT DATE: 20250605
